FAERS Safety Report 9808952 (Version 2)
Quarter: 2014Q2

REPORT INFORMATION
  Report Type: Spontaneous
  Country: FR (occurrence: FR)
  Receive Date: 20140110
  Receipt Date: 20140619
  Transmission Date: 20141212
  Serious: Yes (Hospitalization, Other)
  Sender: FDA-Public Use
  Company Number: FR-PFIZER INC-2014001555

PATIENT
  Age: 64 Year
  Sex: Male
  Weight: 89 kg

DRUGS (14)
  1. TAHOR [Suspect]
     Dosage: 40 MG, DAILY
     Route: 048
     Dates: start: 20130816, end: 20131022
  2. ALIMTA [Suspect]
     Indication: LUNG ADENOCARCINOMA
     Dosage: 1000 MG, SINGLE
     Route: 042
     Dates: start: 20130924, end: 20130924
  3. CARBOPLATINE [Suspect]
     Indication: LUNG ADENOCARCINOMA
     Dosage: 611 MG, SINGLE
     Route: 042
     Dates: start: 20130924, end: 20130924
  4. ZOPICLONE [Suspect]
     Dosage: 7.5 MG, DAILY
     Route: 048
     Dates: start: 20130816, end: 20131022
  5. FLUOXETINE HYDROCHLORIDE [Suspect]
     Dosage: 20 MG, DAILY
     Route: 048
     Dates: start: 20130816, end: 20131022
  6. DEXAMETHASONE [Concomitant]
     Indication: PREMEDICATION
     Dosage: 8 MG, DAILY
  7. SPECIAFOLDINE [Concomitant]
     Indication: PREMEDICATION
     Dosage: 0.4 MG, UNK
     Route: 030
     Dates: start: 20130912
  8. VITAMIN B-12 [Concomitant]
     Indication: PREMEDICATION
     Dosage: UNK
     Route: 030
     Dates: start: 20130912
  9. KARDEGIC [Concomitant]
     Indication: CEREBROVASCULAR ACCIDENT
     Dosage: 160 MG, DAILY
     Dates: start: 20130816
  10. INNOHEP [Concomitant]
     Indication: PHLEBITIS
     Dosage: 0.8 MG, DAILY
     Dates: start: 20130816
  11. PRIMPERAN [Concomitant]
     Indication: PREMEDICATION
     Dosage: UNK
     Dates: start: 20130924
  12. EMEND [Concomitant]
     Indication: PREMEDICATION
     Dosage: 125 MG, DAILY
     Dates: start: 20130924, end: 20130924
  13. EMEND [Concomitant]
     Dosage: 80 MG, DAILY
     Dates: start: 20130925, end: 20130926
  14. INEXIUM /01479302/ [Concomitant]
     Dosage: 20 MG, DAILY
     Dates: start: 20130816

REACTIONS (7)
  - Hepatocellular injury [Recovered/Resolved]
  - Alanine aminotransferase increased [Recovered/Resolved]
  - Aspartate aminotransferase increased [Recovered/Resolved]
  - White blood cell count decreased [Recovered/Resolved]
  - Anaemia [Recovered/Resolved]
  - Dysphonia [Recovered/Resolved]
  - Deafness [Recovered/Resolved]
